FAERS Safety Report 8365930-7 (Version None)
Quarter: 2012Q2

REPORT INFORMATION
  Report Type: 
  Country: None (occurrence: None)
  Receive Date: 20120515
  Receipt Date: 20120515
  Transmission Date: 20120825
  Serious: Yes (Hospitalization)
  Sender: FDA-Public Use
  Company Number: None

PATIENT
  Age: 34 Year
  Sex: Female
  Weight: 81.6475 kg

DRUGS (1)
  1. LOESTRIN 24 FE 5MG [Suspect]
     Indication: CONTRACEPTION
     Dosage: 1 PILL ONCE A DAY
     Dates: start: 20110123, end: 20110428

REACTIONS (4)
  - DYSPNOEA [None]
  - THROMBOSIS [None]
  - PULMONARY THROMBOSIS [None]
  - MUSCLE SPASMS [None]
